FAERS Safety Report 9293269 (Version 3)
Quarter: 2013Q4

REPORT INFORMATION
  Report Type: Spontaneous
  Country: US (occurrence: US)
  Receive Date: 20130516
  Receipt Date: 20131101
  Transmission Date: 20140711
  Serious: Yes (Hospitalization, Congenital Anomaly, Other)
  Sender: FDA-Public Use
  Company Number: US-PFIZER INC-2013149114

PATIENT
  Sex: Female
  Weight: 2.8 kg

DRUGS (17)
  1. ZOLOFT [Suspect]
     Indication: DEPRESSION
     Dosage: 50 MG, UNK
     Route: 064
     Dates: start: 200408
  2. ZYPREXA [Concomitant]
     Dosage: UNK
     Route: 064
  3. TYLENOL [Concomitant]
     Indication: PAIN
     Dosage: 650 MG, EVERY 4 HRS AS NEEDED
     Route: 064
     Dates: start: 20051127
  4. PRENATAL VITAMINS [Concomitant]
     Dosage: ONCE DAILY
     Route: 064
     Dates: start: 20051128
  5. AMBIEN [Concomitant]
     Indication: INSOMNIA
     Dosage: 5 MG, 1X/DAY EVERY NIGHT AT BED TIME AS NEEDED
     Route: 064
     Dates: start: 20051128
  6. PHENERGAN [Concomitant]
     Dosage: 12.5 MG/50 ML EVERY 4 HOURS AS NEEDED
     Route: 064
     Dates: start: 20051128, end: 20051228
  7. CELESTONE [Concomitant]
     Dosage: UNK
     Route: 064
     Dates: start: 20051128, end: 20051227
  8. ALDOMET [Concomitant]
     Indication: HYPERTENSION
     Dosage: 500 MG, 3X/DAY
     Route: 064
     Dates: start: 20060120
  9. COMBIVIR [Concomitant]
     Dosage: UNK
     Route: 064
     Dates: start: 20060120
  10. KALETRA [Concomitant]
     Dosage: UNK
     Route: 064
     Dates: start: 20060120
  11. COLACE [Concomitant]
     Dosage: 100 MG, 2X/DAY
     Route: 064
     Dates: start: 20060122
  12. TERAZOL [Concomitant]
     Dosage: 0.4 %, 1X/DAY EVERY NIGHT AT BED TIME
     Route: 064
     Dates: start: 20060125
  13. RETROVIR [Concomitant]
     Dosage: UNK
     Route: 064
     Dates: start: 20060127
  14. PEPCID [Concomitant]
     Dosage: 20 MG, UNK
     Route: 064
     Dates: start: 20060128
  15. REGLAN [Concomitant]
     Dosage: 10 MG, UNK
     Route: 064
     Dates: start: 20060128
  16. BACITRACIN [Concomitant]
     Dosage: 30 ML, UNK
     Route: 064
     Dates: start: 20060128
  17. HYDRALAZINE [Concomitant]
     Dosage: 5 MG, UNK
     Route: 064
     Dates: start: 20060128

REACTIONS (2)
  - Foetal exposure during pregnancy [Unknown]
  - Cleft palate [Unknown]
